APPROVED DRUG PRODUCT: GUANFACINE HYDROCHLORIDE
Active Ingredient: GUANFACINE HYDROCHLORIDE
Strength: EQ 2MG BASE
Dosage Form/Route: TABLET, EXTENDED RELEASE;ORAL
Application: A202238 | Product #002
Applicant: IMPAX LABORATORIES INC
Approved: Oct 20, 2015 | RLD: No | RS: No | Type: DISCN